FAERS Safety Report 4424048-6 (Version None)
Quarter: 2004Q3

REPORT INFORMATION
  Report Type: 
  Country: None (occurrence: None)
  Receive Date: 20040812
  Receipt Date: 20040805
  Transmission Date: 20050211
  Serious: Yes (Hospitalization, Disabling)
  Sender: FDA-Public Use
  Company Number: US-JNJFOC-20040402577

PATIENT
  Age: 78 Year
  Sex: Female

DRUGS (7)
  1. DURAGESIC [Suspect]
     Route: 062
     Dates: start: 20031001
  2. DURAGESIC [Suspect]
     Indication: CANCER PAIN
     Route: 062
     Dates: start: 20031001
  3. MULTIVITAMIN [Concomitant]
     Route: 049
  4. ZOLOFT [Concomitant]
     Indication: DEPRESSION
     Route: 049
  5. TRANXENE [Concomitant]
     Indication: SLEEP DISORDER THERAPY
     Dosage: PRN, SEVERAL YEARS
     Route: 049
  6. NORCO [Concomitant]
     Route: 049
  7. NORCO [Concomitant]
     Indication: PAIN
     Dosage: 4 TO 6 IN 1 DAY, PRN
     Route: 049

REACTIONS (9)
  - CHEST PAIN [None]
  - CONVULSION [None]
  - DRUG WITHDRAWAL SYNDROME [None]
  - DYSURIA [None]
  - MACULAR DEGENERATION [None]
  - MUSCLE SPASMS [None]
  - NAUSEA [None]
  - PHARMACEUTICAL PRODUCT COMPLAINT [None]
  - SELF-MEDICATION [None]
